FAERS Safety Report 7050466-6 (Version None)
Quarter: 2010Q4

REPORT INFORMATION
  Report Type: 
  Country: None (occurrence: None)
  Receive Date: 20101018
  Receipt Date: 20101012
  Transmission Date: 20110411
  Serious: Yes (Hospitalization)
  Sender: FDA-Public Use
  Company Number: FR-ROCHE-733151

PATIENT
  Age: 30 Year
  Sex: Male

DRUGS (11)
  1. AVASTIN [Suspect]
     Indication: ASTROCYTOMA
     Route: 042
     Dates: start: 20100701, end: 20100901
  2. MALOCIDE [Concomitant]
  3. ADIAZINE [Concomitant]
  4. SPECIAFOLDINE [Concomitant]
  5. KEPPRA [Concomitant]
  6. CORTANCYL [Concomitant]
  7. KIVEXA [Concomitant]
  8. PREZISTA [Concomitant]
  9. NORVIR [Concomitant]
  10. NEXIUM [Concomitant]
  11. LEXOMIL [Concomitant]

REACTIONS (3)
  - ANAL ULCER [None]
  - DIARRHOEA [None]
  - RECTAL HAEMORRHAGE [None]
